FAERS Safety Report 23250449 (Version 1)
Quarter: 2023Q4

REPORT INFORMATION
  Report Type: Report from Study
  Country: GB (occurrence: GB)
  Receive Date: 20231201
  Receipt Date: 20231201
  Transmission Date: 20240110
  Serious: Yes (Death, Hospitalization, Other)
  Sender: FDA-Public Use
  Company Number: GB-Merck Healthcare KGaA-2023456704

PATIENT
  Age: 83 Year
  Sex: Female

DRUGS (2)
  1. SAIZEN [Suspect]
     Active Substance: SOMATROPIN
     Indication: Product used for unknown indication
     Route: 058
  2. SAIZEN [Suspect]
     Active Substance: SOMATROPIN
     Route: 058

REACTIONS (5)
  - Death [Fatal]
  - Fall [Unknown]
  - Rib fracture [Unknown]
  - Cardiac disorder [Unknown]
  - Device defective [Unknown]

NARRATIVE: CASE EVENT DATE: 20230430
